FAERS Safety Report 19812073 (Version 1)
Quarter: 2021Q3

REPORT INFORMATION
  Report Type: Spontaneous
  Country: US (occurrence: US)
  Receive Date: 20210909
  Receipt Date: 20210909
  Transmission Date: 20211014
  Serious: No
  Sender: FDA-Public Use
  Company Number: US-TEVA-2021-US-1944922

PATIENT
  Sex: Male

DRUGS (8)
  1. BUTALBITAL [Suspect]
     Active Substance: BUTALBITAL
     Indication: MIGRAINE
     Route: 065
  2. NAPROXEN. [Suspect]
     Active Substance: NAPROXEN
     Indication: MIGRAINE
     Route: 065
  3. ELAVIL [Suspect]
     Active Substance: AMITRIPTYLINE HYDROCHLORIDE
     Indication: MIGRAINE
     Route: 065
  4. AJOVY [Suspect]
     Active Substance: FREMANEZUMAB-VFRM
     Indication: MIGRAINE
     Route: 065
  5. PROPANOLOL [Suspect]
     Active Substance: PROPRANOLOL HYDROCHLORIDE
     Indication: MIGRAINE
     Route: 065
  6. ROBAXIN [Suspect]
     Active Substance: METHOCARBAMOL
     Indication: MIGRAINE
     Route: 065
  7. AJOVY [Suspect]
     Active Substance: FREMANEZUMAB-VFRM
  8. GABAPENTIN. [Suspect]
     Active Substance: GABAPENTIN
     Indication: MIGRAINE
     Route: 065

REACTIONS (3)
  - Drug ineffective [Unknown]
  - Pain [Unknown]
  - Back pain [Unknown]
